FAERS Safety Report 20609435 (Version 2)
Quarter: 2022Q1

REPORT INFORMATION
  Report Type: Spontaneous
  Country: US (occurrence: US)
  Receive Date: 20220318
  Receipt Date: 20220321
  Transmission Date: 20220424
  Serious: No
  Sender: FDA-Public Use
  Company Number: ae002US22

PATIENT
  Age: 64 Year
  Sex: Female

DRUGS (5)
  1. ASCLERA [Suspect]
     Active Substance: POLIDOCANOL
     Route: 042
     Dates: start: 20220121, end: 20220121
  2. MUPIROCIN [Concomitant]
     Active Substance: MUPIROCIN
     Dosage: UNKNOWN DOSE BID
  3. HONEY [Concomitant]
     Active Substance: HONEY
  4. SCAR GEL [Concomitant]
     Active Substance: ALLANTOIN
  5. Bandages [Concomitant]

REACTIONS (3)
  - Skin ulcer [Not Recovered/Not Resolved]
  - Injection site erythema [Not Recovered/Not Resolved]
  - Injection site oedema [Not Recovered/Not Resolved]

NARRATIVE: CASE EVENT DATE: 20220221
